FAERS Safety Report 4387712-3 (Version None)
Quarter: 2004Q2

REPORT INFORMATION
  Report Type: 
  Country: None (occurrence: None)
  Receive Date: 20040625
  Receipt Date: 20040611
  Transmission Date: 20050107
  Serious: Yes (Other)
  Sender: FDA-Public Use
  Company Number: CEL-2004-00739-ROC

PATIENT
  Age: 24 Year
  Sex: Female

DRUGS (1)
  1. DIPENTUM [Suspect]
     Indication: COLITIS ULCERATIVE
     Dosage: SEE IMAGE
     Route: 048
     Dates: start: 20040415, end: 20040422

REACTIONS (2)
  - DISEASE RECURRENCE [None]
  - PANCREATITIS [None]
